FAERS Safety Report 19110911 (Version 1)
Quarter: 2021Q2

REPORT INFORMATION
  Report Type: Spontaneous
  Country: FR (occurrence: FR)
  Receive Date: 20210408
  Receipt Date: 20210408
  Transmission Date: 20210717
  Serious: Yes (Other)
  Sender: FDA-Public Use
  Company Number: FR-AMGEN-FRASP2021050751

PATIENT
  Age: 60 Year
  Sex: Female
  Weight: 66 kg

DRUGS (2)
  1. XGEVA [Suspect]
     Active Substance: DENOSUMAB
     Indication: PATHOLOGICAL FRACTURE PROPHYLAXIS
     Dosage: 120 MILLIGRAM, QMO
     Route: 030
     Dates: start: 201901, end: 202103
  2. CAPECITABINE ACCORD [Suspect]
     Active Substance: CAPECITABINE
     Indication: HER2 NEGATIVE BREAST CANCER
     Dosage: 1650 MILLIGRAM
     Route: 048
     Dates: start: 202007

REACTIONS (1)
  - Thrombosed varicose vein [Recovered/Resolved]

NARRATIVE: CASE EVENT DATE: 20210123
